FAERS Safety Report 19082209 (Version 2)
Quarter: 2021Q3

REPORT INFORMATION
  Report Type: Spontaneous
  Country: US (occurrence: US)
  Receive Date: 20210401
  Receipt Date: 20210708
  Transmission Date: 20211014
  Serious: Yes (Other)
  Sender: FDA-Public Use
  Company Number: US-CIPLA (EU) LIMITED-2021US02271

PATIENT

DRUGS (1)
  1. SALBUTAMOL [Suspect]
     Active Substance: ALBUTEROL
     Indication: ASTHMA
     Dosage: 2 PUFFS, PRN (AS NEEDED)
     Dates: start: 202011, end: 20210317

REACTIONS (6)
  - Presyncope [Recovered/Resolved]
  - Product cleaning inadequate [Unknown]
  - Wrong technique in device usage process [Unknown]
  - Dyspnoea [Recovered/Resolved]
  - Near death experience [Recovered/Resolved]
  - Device delivery system issue [Unknown]

NARRATIVE: CASE EVENT DATE: 20210317
